FAERS Safety Report 11316168 (Version 2)
Quarter: 2015Q3

REPORT INFORMATION
  Report Type: Report from Study
  Country: US (occurrence: US)
  Receive Date: 20150728
  Receipt Date: 20150825
  Transmission Date: 20151125
  Serious: Yes (Hospitalization)
  Sender: FDA-Public Use
  Company Number: US-BIOGENIDEC-2015BI104167

PATIENT
  Age: 60 Year
  Sex: Female

DRUGS (1)
  1. TECFIDERA [Suspect]
     Active Substance: DIMETHYL FUMARATE
     Indication: MULTIPLE SCLEROSIS
     Route: 048
     Dates: start: 20150629, end: 20150701

REACTIONS (10)
  - Headache [Unknown]
  - Cognitive disorder [Unknown]
  - Confusional state [Unknown]
  - Apathy [Unknown]
  - Feeling abnormal [Unknown]
  - Asthenia [Unknown]
  - Pruritus [Recovered/Resolved]
  - Gait disturbance [Unknown]
  - Sluggishness [Not Recovered/Not Resolved]
  - Gastrooesophageal reflux disease [Not Recovered/Not Resolved]

NARRATIVE: CASE EVENT DATE: 201507
